FAERS Safety Report 9254250 (Version 4)
Quarter: 2014Q2

REPORT INFORMATION
  Report Type: Report from Study
  Country: US (occurrence: US)
  Receive Date: 20130425
  Receipt Date: 20140515
  Transmission Date: 20141212
  Serious: Yes (Hospitalization)
  Sender: FDA-Public Use
  Company Number: PHEH2013US008280

PATIENT
  Age: 28 Year
  Sex: Female
  Weight: 67 kg

DRUGS (5)
  1. GILENYA [Suspect]
     Indication: MULTIPLE SCLEROSIS
     Dosage: 0.5 MG, QD
     Route: 048
     Dates: start: 20130322
  2. BACLOFEN [Concomitant]
     Indication: MUSCLE SPASMS
     Dosage: 20 MG, BID
     Route: 048
     Dates: start: 20121011
  3. KEPPRA [Concomitant]
     Indication: NEURALGIA
     Dosage: 750 MG, BID
     Route: 048
     Dates: start: 20130314
  4. PAROXETINE [Concomitant]
     Indication: DEPRESSION
     Dosage: 20 MG, DAILY
     Route: 048
     Dates: start: 20121101
  5. PAROXETINE [Concomitant]
     Indication: ANXIETY

REACTIONS (29)
  - Cardiac arrest [Unknown]
  - Eye disorder [Unknown]
  - Visual impairment [Unknown]
  - Decreased appetite [Recovering/Resolving]
  - Nausea [Recovering/Resolving]
  - Multiple sclerosis relapse [Not Recovered/Not Resolved]
  - Malaise [Unknown]
  - Generalised tonic-clonic seizure [Unknown]
  - Amnesia [Unknown]
  - Gait disturbance [Recovering/Resolving]
  - Central nervous system lesion [Unknown]
  - Diplopia [Unknown]
  - Musculoskeletal pain [Recovering/Resolving]
  - Hypoaesthesia [Unknown]
  - Burning sensation [Recovering/Resolving]
  - Pain in extremity [Recovering/Resolving]
  - Balance disorder [Unknown]
  - Paraesthesia [Recovering/Resolving]
  - Muscle twitching [Recovering/Resolving]
  - Muscle spasms [Recovering/Resolving]
  - Syncope [Unknown]
  - Demyelination [Unknown]
  - Lhermitte^s sign [Unknown]
  - Pain [Recovering/Resolving]
  - Back pain [Not Recovered/Not Resolved]
  - Endometriosis [Unknown]
  - Fatigue [Unknown]
  - Migraine [Unknown]
  - Dizziness postural [Unknown]
